FAERS Safety Report 8824884 (Version 1)
Quarter: 2012Q4

REPORT INFORMATION
  Report Type: 
  Country: ES (occurrence: ES)
  Receive Date: 20121004
  Receipt Date: 20121004
  Transmission Date: 20130627
  Serious: Yes (Hospitalization)
  Sender: FDA-Public Use
  Company Number: ES-009507513-1210ESP000273

PATIENT
  Sex: Female

DRUGS (3)
  1. SYCREST [Suspect]
     Indication: BIPOLAR I DISORDER
     Dosage: 5 mg morning
     Route: 060
     Dates: end: 201208
  2. SYCREST [Interacting]
     Dosage: 20 mg, evening
     Route: 060
     Dates: end: 201208
  3. ANAFRANIL [Interacting]
     Dosage: 75 mg, UNK

REACTIONS (4)
  - Drug interaction [Recovered/Resolved]
  - Musculoskeletal stiffness [Unknown]
  - Hypokinesia [Unknown]
  - Prescribed overdose [Recovered/Resolved]
